FAERS Safety Report 13352410 (Version 1)
Quarter: 2017Q1

REPORT INFORMATION
  Report Type: Spontaneous
  Country: US (occurrence: US)
  Receive Date: 20170320
  Receipt Date: 20170320
  Transmission Date: 20170429
  Serious: No
  Sender: FDA-Public Use
  Company Number: US-ALLERGAN-1667744US

PATIENT
  Age: 90 Year
  Sex: Female

DRUGS (3)
  1. LISINOPRIL. [Concomitant]
     Active Substance: LISINOPRIL
     Indication: HYPERTENSION
     Dosage: UNK
     Route: 048
  2. ZOLOFT [Concomitant]
     Active Substance: SERTRALINE HYDROCHLORIDE
     Indication: DEPRESSION
     Dosage: 75 MG, UNK
     Route: 048
  3. OXYTROL [Suspect]
     Active Substance: OXYBUTYNIN
     Indication: POLLAKIURIA
     Dosage: 3.9 MG, QD
     Route: 062
     Dates: start: 201607

REACTIONS (5)
  - Bowel movement irregularity [Recovered/Resolved]
  - Abdominal pain upper [Recovered/Resolved]
  - Erythema [Recovered/Resolved]
  - Rash [Recovered/Resolved]
  - Pruritus [Recovered/Resolved]

NARRATIVE: CASE EVENT DATE: 20160901
